FAERS Safety Report 12393538 (Version 2)
Quarter: 2017Q2

REPORT INFORMATION
  Report Type: Report from Study
  Country: BE (occurrence: BE)
  Receive Date: 20160523
  Receipt Date: 20170531
  Transmission Date: 20170830
  Serious: Yes (Other)
  Sender: FDA-Public Use
  Company Number: BE-BEH-2016060552

PATIENT
  Sex: Female

DRUGS (1)
  1. HIZENTRA [Suspect]
     Active Substance: HUMAN IMMUNOGLOBULIN G
     Indication: PRODUCT USED FOR UNKNOWN INDICATION
     Dosage: UNK
     Route: 065
     Dates: start: 20121121

REACTIONS (6)
  - Nasal discomfort [Unknown]
  - Erythema [Unknown]
  - Pulmonary pain [Unknown]
  - Pneumonia [Recovered/Resolved]
  - Viral upper respiratory tract infection [Unknown]
  - Local swelling [Unknown]

NARRATIVE: CASE EVENT DATE: 201501
